FAERS Safety Report 4572657-6 (Version None)
Quarter: 2005Q1

REPORT INFORMATION
  Report Type: 
  Country: None (occurrence: None)
  Receive Date: 20050208
  Receipt Date: 20041108
  Transmission Date: 20050727
  Serious: No
  Sender: FDA-Public Use
  Company Number: US-GLAXOSMITHKLINE-A0533119A

PATIENT
  Age: 35 Year
  Sex: Female

DRUGS (3)
  1. PAXIL CR [Suspect]
     Indication: DEPRESSION
     Dosage: 37.5MG PER DAY
     Route: 048
     Dates: start: 20031001, end: 20040501
  2. WELLBUTRIN SR [Suspect]
     Indication: DEPRESSION
     Dosage: 100MG TWICE PER DAY
     Route: 048
     Dates: start: 20041001
  3. NO CONCURRENT MEDICATION [Concomitant]

REACTIONS (7)
  - ABDOMINAL DISTENSION [None]
  - AFFECT LABILITY [None]
  - NAUSEA [None]
  - NIGHTMARE [None]
  - SLEEP DISORDER [None]
  - VERTIGO [None]
  - WEIGHT INCREASED [None]
